FAERS Safety Report 8600727-1 (Version None)
Quarter: 2012Q3

REPORT INFORMATION
  Report Type: 
  Country: None (occurrence: None)
  Receive Date: 20120803
  Receipt Date: 20120725
  Transmission Date: 20120928
  Serious: Yes (Hospitalization, Other)
  Sender: FDA-Public Use
  Company Number: EU-2012-10083

PATIENT
  Sex: Female
  Weight: 54 kg

DRUGS (57)
  1. SALINE (SALINE), 0.9% PERCENT [Concomitant]
  2. TRAVEGIL (CLEMASTINE) [Concomitant]
  3. PREDNISOLON (PREDNISOLONE SODIUIM SUCCINATE) [Concomitant]
  4. CLEMASTINE FUMARATE [Concomitant]
  5. LEVOTHYROXINE SODIUM [Concomitant]
  6. RIOPAN (MAGALDRATE) [Concomitant]
  7. METOPROLOL SUCCINATE [Concomitant]
  8. EMEND [Concomitant]
  9. PANTOZOL (PANTOPRAZOLE) [Concomitant]
  10. SAMSCA [Suspect]
     Indication: INAPPROPRIATE ANTIDIURETIC HORMONE SECRETION
     Dosage: 15 MG DAILY DOSE, ORAL
     Route: 048
     Dates: start: 20120414
  11. SAMSCA [Suspect]
     Indication: HYPONATRAEMIA
     Dosage: 15 MG DAILY DOSE, ORAL
     Route: 048
     Dates: start: 20120414
  12. SAMSCA [Suspect]
     Indication: INAPPROPRIATE ANTIDIURETIC HORMONE SECRETION
     Dosage: 15 MG DAILY DOSE, ORAL
     Route: 048
     Dates: start: 20111221, end: 20111221
  13. SAMSCA [Suspect]
     Indication: HYPONATRAEMIA
     Dosage: 15 MG DAILY DOSE, ORAL
     Route: 048
     Dates: start: 20111221, end: 20111221
  14. SAMSCA [Suspect]
     Indication: INAPPROPRIATE ANTIDIURETIC HORMONE SECRETION
     Dosage: 15 MG DAILY DOSE, ORAL
     Route: 048
     Dates: start: 20120109, end: 20120109
  15. SAMSCA [Suspect]
     Indication: HYPONATRAEMIA
     Dosage: 15 MG DAILY DOSE, ORAL
     Route: 048
     Dates: start: 20120109, end: 20120109
  16. SAMSCA [Suspect]
     Indication: INAPPROPRIATE ANTIDIURETIC HORMONE SECRETION
     Dosage: 15 MG DAILY DOSE, ORAL
     Route: 048
     Dates: start: 20120330, end: 20120408
  17. SAMSCA [Suspect]
     Indication: HYPONATRAEMIA
     Dosage: 15 MG DAILY DOSE, ORAL
     Route: 048
     Dates: start: 20120330, end: 20120408
  18. SAMSCA [Suspect]
     Indication: INAPPROPRIATE ANTIDIURETIC HORMONE SECRETION
     Dosage: 15 MG DAILY DOSE, ORAL
     Route: 048
     Dates: start: 20120412, end: 20120412
  19. SAMSCA [Suspect]
     Indication: HYPONATRAEMIA
     Dosage: 15 MG DAILY DOSE, ORAL
     Route: 048
     Dates: start: 20120412, end: 20120412
  20. SAMSCA [Suspect]
     Indication: INAPPROPRIATE ANTIDIURETIC HORMONE SECRETION
     Dosage: 15 MG DAILY DOSE, ORAL
     Route: 048
     Dates: start: 20120202, end: 20120202
  21. SAMSCA [Suspect]
     Indication: HYPONATRAEMIA
     Dosage: 15 MG DAILY DOSE, ORAL
     Route: 048
     Dates: start: 20120202, end: 20120202
  22. SAMSCA [Suspect]
     Indication: INAPPROPRIATE ANTIDIURETIC HORMONE SECRETION
     Dosage: 15 MG DAILY DOSE, ORAL
     Route: 048
     Dates: start: 20120225, end: 20120225
  23. SAMSCA [Suspect]
     Indication: HYPONATRAEMIA
     Dosage: 15 MG DAILY DOSE, ORAL
     Route: 048
     Dates: start: 20120225, end: 20120225
  24. SAMSCA [Suspect]
     Indication: INAPPROPRIATE ANTIDIURETIC HORMONE SECRETION
     Dosage: 15 MG DAILY DOSE, ORAL
     Route: 048
     Dates: start: 20120222, end: 20120222
  25. SAMSCA [Suspect]
     Indication: HYPONATRAEMIA
     Dosage: 15 MG DAILY DOSE, ORAL
     Route: 048
     Dates: start: 20120222, end: 20120222
  26. SAMSCA [Suspect]
     Indication: INAPPROPRIATE ANTIDIURETIC HORMONE SECRETION
     Dosage: 15 MG DAILY DOSE, ORAL
     Route: 048
     Dates: start: 20120228, end: 20120326
  27. SAMSCA [Suspect]
     Indication: HYPONATRAEMIA
     Dosage: 15 MG DAILY DOSE, ORAL
     Route: 048
     Dates: start: 20120228, end: 20120326
  28. SAMSCA [Suspect]
     Indication: INAPPROPRIATE ANTIDIURETIC HORMONE SECRETION
     Dosage: 15 MG DAILY DOSE, ORAL
     Route: 048
     Dates: start: 20120117, end: 20120117
  29. SAMSCA [Suspect]
     Indication: HYPONATRAEMIA
     Dosage: 15 MG DAILY DOSE, ORAL
     Route: 048
     Dates: start: 20120117, end: 20120117
  30. FENOFIBRATE [Concomitant]
  31. EMEND (APEPITANT) [Concomitant]
  32. METOCLOPRAMIDE [Concomitant]
  33. NULYTELY [Concomitant]
  34. GRANISETRON (GRANISETRON HYDROCHLORIDE) [Concomitant]
  35. DIMENHYDRINATE [Concomitant]
  36. ATACAND [Concomitant]
  37. METOCLOPRAMIDE HYDROCHLORIDE [Concomitant]
  38. CARBOPLATIN [Concomitant]
  39. RANITIDINE HYDROCHLORIDE [Concomitant]
  40. BEZAFIBRAT (BEZAFIBRATE) [Concomitant]
  41. ZOFRAN [Concomitant]
  42. FORTECORTIN (DEXAMETHASONE) [Concomitant]
  43. RIOPAN (MAGALDRATE) [Concomitant]
  44. ZOFRAN [Concomitant]
  45. DIMENHYDRINATE [Concomitant]
  46. FRAXIPARIN (NADROPARIN CALCIIUM) [Concomitant]
  47. ZANTAC [Concomitant]
  48. NACL (NACL) [Concomitant]
  49. HALDOL [Concomitant]
  50. FORTECORTIN (DEXAMETHASONE) [Concomitant]
  51. EMEND [Concomitant]
  52. HYOSCINE HBR HYT [Concomitant]
  53. PANTOPRAZOLE SODIUM [Concomitant]
  54. RANITIDINE HYDROCHLORIDE [Concomitant]
  55. ETOPOSIDE [Concomitant]
  56. NOVALGIN (METAMIZOLE SODIUM) [Concomitant]
  57. VERGENTAN (ALIZAPRIDE HYDROCHLORIDE) [Concomitant]

REACTIONS (7)
  - GENERAL PHYSICAL HEALTH DETERIORATION [None]
  - BLOOD SODIUM DECREASED [None]
  - RAPID CORRECTION OF HYPONATRAEMIA [None]
  - THIRST [None]
  - VOMITING [None]
  - PRURITUS [None]
  - NAUSEA [None]
